FAERS Safety Report 7679609-8 (Version None)
Quarter: 2011Q3

REPORT INFORMATION
  Report Type: 
  Country: None (occurrence: None)
  Receive Date: 20110812
  Receipt Date: 20110803
  Transmission Date: 20111222
  Serious: Yes (Hospitalization)
  Sender: FDA-Public Use
  Company Number: US-AMGEN-USASP2011039370

PATIENT
  Age: 62 Year
  Sex: Female

DRUGS (1)
  1. ENBREL [Suspect]
     Indication: RHEUMATOID ARTHRITIS
     Dosage: 50 MG, QWK
     Dates: start: 20090625

REACTIONS (7)
  - SYSTEMIC LUPUS ERYTHEMATOSUS [None]
  - PAIN IN EXTREMITY [None]
  - NEUROPATHIC ARTHROPATHY [None]
  - DIABETES MELLITUS [None]
  - KNEE ARTHROPLASTY [None]
  - OEDEMA PERIPHERAL [None]
  - ARTHRALGIA [None]
